FAERS Safety Report 12836649 (Version 1)
Quarter: 2016Q4

REPORT INFORMATION
  Report Type: Spontaneous
  Country: US (occurrence: US)
  Receive Date: 20161005
  Receipt Date: 20161005
  Transmission Date: 20170207
  Serious: Yes (Disabling, Other)
  Sender: FDA-Public Use
  Company Number: None

PATIENT
  Age: 29 Year
  Sex: Female
  Weight: 103.5 kg

DRUGS (4)
  1. VENTOLIN [Concomitant]
     Active Substance: ALBUTEROL SULFATE
  2. CORTICOSTEROID NOS [Suspect]
     Active Substance: CORTICOSTEROID NOS
     Indication: ECZEMA
     Dates: start: 20071001, end: 20160601
  3. CETERIZINE [Concomitant]
  4. ATARAX [Concomitant]
     Active Substance: HYDROXYZINE\HYDROXYZINE HYDROCHLORIDE

REACTIONS (7)
  - Anaphylactic reaction [None]
  - Skin atrophy [None]
  - Rash erythematous [None]
  - Skin exfoliation [None]
  - Pain [None]
  - Quality of life decreased [None]
  - Temperature regulation disorder [None]
